FAERS Safety Report 6223715-1 (Version None)
Quarter: 2009Q2

REPORT INFORMATION
  Report Type: 
  Country: None (occurrence: None)
  Receive Date: 20090611
  Receipt Date: 20090408
  Transmission Date: 20091009
  Serious: No
  Sender: FDA-Public Use
  Company Number: PR-ABBOTT-09P-131-0559333-00

PATIENT
  Sex: Male
  Weight: 66.284 kg

DRUGS (4)
  1. HUMIRA [Suspect]
     Indication: PSORIASIS
     Dosage: 1 PEN
     Route: 058
     Dates: start: 20090121
  2. GLUCOSAMINE [Concomitant]
     Indication: MEDICAL DIET
     Route: 048
  3. VITAMIN A [Concomitant]
     Indication: VITAMIN SUPPLEMENTATION
     Route: 048
  4. VITAMIN E [Concomitant]
     Indication: VITAMIN SUPPLEMENTATION
     Route: 048

REACTIONS (4)
  - DRY MOUTH [None]
  - DRY SKIN [None]
  - DYSGEUSIA [None]
  - FEELING HOT [None]
